FAERS Safety Report 14410235 (Version 1)
Quarter: 2018Q1

REPORT INFORMATION
  Report Type: Report from Study
  Country: JP (occurrence: JP)
  Receive Date: 20180119
  Receipt Date: 20180119
  Transmission Date: 20180509
  Serious: Yes (Hospitalization)
  Sender: FDA-Public Use
  Company Number: JP-UNICHEM PHARMACEUTICALS (USA) INC-UCM201801-000013

PATIENT
  Age: 63 Year
  Sex: Female

DRUGS (3)
  1. OLANZAPINE. [Suspect]
     Active Substance: OLANZAPINE
  2. DIVALPROEX SODIUM. [Suspect]
     Active Substance: DIVALPROEX SODIUM
  3. FLUNITRAZEPAM [Suspect]
     Active Substance: FLUNITRAZEPAM

REACTIONS (7)
  - Chills [Recovered/Resolved]
  - Somnolence [Recovered/Resolved]
  - Hypothermia [Recovered/Resolved]
  - Muscle rigidity [Recovered/Resolved]
  - Sinus bradycardia [Recovered/Resolved]
  - Delirium [Recovered/Resolved]
  - Product use in unapproved indication [Unknown]
